FAERS Safety Report 21599145 (Version 1)
Quarter: 2022Q4

REPORT INFORMATION
  Report Type: Report from Study
  Country: US (occurrence: US)
  Receive Date: 20221115
  Receipt Date: 20221115
  Transmission Date: 20230112
  Serious: Yes (Hospitalization)
  Sender: FDA-Public Use
  Company Number: US-MYLANLABS-2022M1003654

PATIENT
  Sex: Male

DRUGS (2)
  1. TOBI [Suspect]
     Active Substance: TOBRAMYCIN
     Indication: Bronchiectasis
     Dosage: 5 MILLILITER, BID (TAKE 5 ML BY NEBULIZATION 2 TIMES A DAY FOR 7 DAYS)
     Route: 055
  2. TOBI [Suspect]
     Active Substance: TOBRAMYCIN
     Indication: Pseudomonas infection

REACTIONS (4)
  - Pneumonia pseudomonal [Unknown]
  - Product dose omission issue [Unknown]
  - Dyspnoea [Recovering/Resolving]
  - Off label use [Unknown]
